FAERS Safety Report 15890920 (Version 2)
Quarter: 2019Q1

REPORT INFORMATION
  Report Type: Spontaneous
  Country: US (occurrence: US)
  Receive Date: 20190130
  Receipt Date: 20190212
  Transmission Date: 20190417
  Serious: No
  Sender: FDA-Public Use
  Company Number: US-PFIZER INC-2019043771

PATIENT
  Age: 80 Year
  Sex: Female
  Weight: 55 kg

DRUGS (1)
  1. IBRANCE [Suspect]
     Active Substance: PALBOCICLIB
     Indication: BREAST CANCER METASTATIC
     Dosage: 125 MG, CYCLIC [DAYS 1-21 EVERY 28 DAYS, DAYS 1-21 Q28 DAYS]
     Route: 048
     Dates: start: 20190111

REACTIONS (6)
  - Memory impairment [Unknown]
  - Alopecia [Unknown]
  - Flatulence [Unknown]
  - White blood cell count decreased [Unknown]
  - Product dose omission [Unknown]
  - Rash erythematous [Unknown]

NARRATIVE: CASE EVENT DATE: 201901
